FAERS Safety Report 20811231 (Version 5)
Quarter: 2025Q3

REPORT INFORMATION
  Report Type: Report from Study
  Country: US (occurrence: US)
  Receive Date: 20220510
  Receipt Date: 20250717
  Transmission Date: 20251020
  Serious: Yes (Hospitalization, Other)
  Sender: TAKEDA
  Company Number: US-TAKEDA-2022TUS009209

PATIENT
  Sex: Male
  Weight: 77 kg

DRUGS (18)
  1. PONATINIB [Suspect]
     Active Substance: PONATINIB
     Indication: Myelodysplastic syndrome
     Dosage: 45 MILLIGRAM, QD
  2. PONATINIB [Suspect]
     Active Substance: PONATINIB
     Indication: Leukaemia
     Dosage: 30 MILLIGRAM, QD
  3. PONATINIB [Suspect]
     Active Substance: PONATINIB
     Indication: Acute lymphocytic leukaemia (in remission)
  4. FYCOMPA [Suspect]
     Active Substance: PERAMPANEL
     Indication: Epilepsy
  5. FYCOMPA [Suspect]
     Active Substance: PERAMPANEL
     Indication: Seizure
  6. XCOPRI [Suspect]
     Active Substance: CENOBAMATE
     Indication: Epilepsy
  7. XCOPRI [Suspect]
     Active Substance: CENOBAMATE
     Indication: Seizure
  8. ACYCLOVIR [Concomitant]
     Active Substance: ACYCLOVIR
  9. PEPCID [Concomitant]
     Active Substance: FAMOTIDINE
  10. FLUCONAZOLE [Concomitant]
     Active Substance: FLUCONAZOLE
  11. LEUCOVORIN [Concomitant]
     Active Substance: LEUCOVORIN\LEUCOVORIN CALCIUM
  12. LEVOFLOXACIN [Concomitant]
     Active Substance: LEVOFLOXACIN
  13. CLARITIN [Concomitant]
     Active Substance: LORATADINE
  14. LIDOCAINE [Concomitant]
     Active Substance: LIDOCAINE
     Indication: Stomatitis
  15. COMPAZINE [Concomitant]
     Active Substance: PROCHLORPERAZINE MALEATE
  16. BACTRIM [Concomitant]
     Active Substance: SULFAMETHOXAZOLE\TRIMETHOPRIM
  17. TRAMADOL [Concomitant]
     Active Substance: TRAMADOL
  18. VIMPAT [Concomitant]
     Active Substance: LACOSAMIDE

REACTIONS (6)
  - Drug interaction [Unknown]
  - Epilepsy [Unknown]
  - Nasopharyngitis [Recovering/Resolving]
  - Memory impairment [Unknown]
  - Off label use [Unknown]
  - Cough [Unknown]
